FAERS Safety Report 4584950-1 (Version None)
Quarter: 2005Q1

REPORT INFORMATION
  Report Type: 
  Country: None (occurrence: None)
  Receive Date: 20050217
  Receipt Date: 20041118
  Transmission Date: 20050727
  Serious: Yes (Disabling)
  Sender: FDA-Public Use
  Company Number: US-GLAXOSMITHKLINE-A0534502A

PATIENT
  Age: 34 Year
  Sex: Male

DRUGS (2)
  1. WELLBUTRIN [Suspect]
     Indication: DEPRESSION
     Dosage: 150MG PER DAY
     Route: 048
     Dates: start: 20041108
  2. WELLBUTRIN [Suspect]
     Dosage: 100MG PER DAY

REACTIONS (3)
  - ANXIETY [None]
  - INSOMNIA [None]
  - SOMNOLENCE [None]
